FAERS Safety Report 9611179 (Version 4)
Quarter: 2013Q4

REPORT INFORMATION
  Report Type: Report from Study
  Country: DE (occurrence: DE)
  Receive Date: 20131009
  Receipt Date: 20131127
  Transmission Date: 20140711
  Serious: Yes (Hospitalization)
  Sender: FDA-Public Use
  Company Number: DE-ABBVIE-13P-062-1155546-00

PATIENT
  Sex: Female

DRUGS (3)
  1. HUMIRA [Suspect]
     Indication: PSORIATIC ARTHROPATHY
     Route: 058
     Dates: start: 20130703, end: 20130912
  2. HUMIRA [Suspect]
     Dates: start: 20131114
  3. TILIDINE [Concomitant]

REACTIONS (2)
  - Abdominal adhesions [Recovered/Resolved]
  - Inflammation [Recovered/Resolved]
